FAERS Safety Report 18549923 (Version 2)
Quarter: 2021Q1

REPORT INFORMATION
  Report Type: Spontaneous
  Country: US (occurrence: US)
  Receive Date: 20201126
  Receipt Date: 20210318
  Transmission Date: 20210419
  Serious: Yes (Other)
  Sender: FDA-Public Use
  Company Number: US-PFIZER INC-2020465605

PATIENT
  Age: 76 Year
  Sex: Male

DRUGS (1)
  1. VYNDAMAX [Suspect]
     Active Substance: TAFAMIDIS
     Dosage: 61 MG

REACTIONS (6)
  - Cardiomyopathy [Unknown]
  - Hypertension [Unknown]
  - Amyloidosis [Unknown]
  - Dyspnoea [Unknown]
  - Hyperlipidaemia [Unknown]
  - Coronary artery disease [Unknown]
